FAERS Safety Report 24268824 (Version 3)
Quarter: 2024Q4

REPORT INFORMATION
  Report Type: Report from Study
  Country: US (occurrence: US)
  Receive Date: 20240830
  Receipt Date: 20241021
  Transmission Date: 20250115
  Serious: Yes (Hospitalization, Other)
  Sender: ABBVIE
  Company Number: US-ABBVIE-5896866

PATIENT
  Sex: Female
  Weight: 67 kg

DRUGS (5)
  1. VENCLEXTA [Suspect]
     Active Substance: VENETOCLAX
     Indication: Myelodysplastic syndrome with excess blasts
     Dosage: FORM STRENGTH: 40 MILLIGRAM? 14/28 CYCLE?STOP DATE: 2024
     Route: 048
     Dates: start: 202404
  2. DECITABINE [Concomitant]
     Active Substance: DECITABINE
     Indication: Chemotherapy
     Dates: start: 2024
  3. ACYCLOVIR [Concomitant]
     Active Substance: ACYCLOVIR
     Indication: Prophylaxis
  4. CRESEMBA [Concomitant]
     Active Substance: ISAVUCONAZONIUM SULFATE
     Indication: Prophylaxis
  5. LEVOFLOXACIN [Concomitant]
     Active Substance: LEVOFLOXACIN
     Indication: Prophylaxis

REACTIONS (5)
  - COVID-19 [Recovered/Resolved]
  - Oxygen saturation decreased [Recovered/Resolved]
  - Depressed mood [Unknown]
  - Anxiety [Recovering/Resolving]
  - General physical health deterioration [Recovering/Resolving]

NARRATIVE: CASE EVENT DATE: 20240101
